FAERS Safety Report 5202103-0 (Version None)
Quarter: 2007Q1

REPORT INFORMATION
  Report Type: 
  Country: None (occurrence: None)
  Receive Date: 20070109
  Receipt Date: 20070104
  Transmission Date: 20070707
  Serious: Yes (Hospitalization)
  Sender: FDA-Public Use
  Company Number: FR-AVENTIS-200710016FR

PATIENT
  Age: 71 Year
  Sex: Male

DRUGS (7)
  1. ENOXAPARIN SODIUM [Suspect]
     Indication: DRUG USE FOR UNKNOWN INDICATION
     Route: 058
  2. LASILIX                            /00032601/ [Concomitant]
     Indication: DRUG USE FOR UNKNOWN INDICATION
  3. FOZITEC                            /00915301/ [Concomitant]
     Indication: DRUG USE FOR UNKNOWN INDICATION
  4. AMLOR [Concomitant]
     Indication: DRUG USE FOR UNKNOWN INDICATION
  5. NOVOMIX                            /01475801/ [Concomitant]
     Indication: INSULIN-REQUIRING TYPE II DIABETES MELLITUS
  6. ALLOPURINOL TAB [Concomitant]
     Indication: DRUG USE FOR UNKNOWN INDICATION
  7. KARDEGIC                           /00002703/ [Concomitant]
     Indication: DRUG USE FOR UNKNOWN INDICATION

REACTIONS (2)
  - BLOOD BLISTER [None]
  - RENAL IMPAIRMENT [None]
